FAERS Safety Report 10505097 (Version 4)
Quarter: 2016Q4

REPORT INFORMATION
  Report Type: Spontaneous
  Country: US (occurrence: US)
  Receive Date: 20141008
  Receipt Date: 20161004
  Transmission Date: 20170206
  Serious: Yes (Death, Hospitalization, Other)
  Sender: FDA-Public Use
  Company Number: US-009507513-1409USA008134

PATIENT

DRUGS (7)
  1. PEGINTRON [Suspect]
     Active Substance: PEGINTERFERON ALFA-2B
     Indication: HEPATITIS C
     Dosage: 1.5 MG/KG, QW
  2. TELAPREVIR [Suspect]
     Active Substance: TELAPREVIR
     Dosage: 1125 MG, BID
  3. BOCEPREVIR [Suspect]
     Active Substance: BOCEPREVIR
     Indication: HEPATITIS C
     Dosage: 800 MG, TID X 44 WEEKS
  4. REBETOL [Suspect]
     Active Substance: RIBAVIRIN
     Indication: HEPATITIS C
     Dosage: WEIGH BASED ADJUSTED FOR RENAL FUNCTION
     Route: 048
  5. PEGINTERFERON ALFA-2A [Suspect]
     Active Substance: PEGINTERFERON ALFA-2A
     Indication: HEPATITIS C
     Dosage: 180 MICROGRAM, QW
     Route: 065
  6. REBETOL [Suspect]
     Active Substance: RIBAVIRIN
     Dosage: WEIGH BASED ADJUSTED FOR RENAL FUNCTION
     Route: 048
  7. TELAPREVIR [Suspect]
     Active Substance: TELAPREVIR
     Indication: HEPATITIS C
     Dosage: 750 MG, TID

REACTIONS (12)
  - Transplant rejection [Unknown]
  - Bacteraemia [Unknown]
  - Infection [Unknown]
  - Hepatic failure [Fatal]
  - Thrombocytopenia [Unknown]
  - Renal failure [Unknown]
  - Ascites [Unknown]
  - Leukopenia [Unknown]
  - Acute kidney injury [Unknown]
  - Anaemia [Unknown]
  - Rash [Unknown]
  - Hepatic cirrhosis [Unknown]
